FAERS Safety Report 6984615-2 (Version None)
Quarter: 2010Q3

REPORT INFORMATION
  Report Type: 
  Country: None (occurrence: None)
  Receive Date: 20100915
  Receipt Date: 20100903
  Transmission Date: 20110219
  Serious: Yes (Other)
  Sender: FDA-Public Use
  Company Number: ES-PFIZER INC-2010098816

PATIENT
  Age: 49 Year
  Sex: Female
  Weight: 68 kg

DRUGS (9)
  1. LYRICA [Suspect]
     Indication: GENERALISED ANXIETY DISORDER
     Dosage: 75 MG, 1X/DAY
     Route: 048
     Dates: start: 20090114
  2. LYRICA [Suspect]
     Dosage: UNK
     Dates: start: 20090306
  3. LYRICA [Suspect]
     Dosage: UNK
     Dates: start: 20090414
  4. LYRICA [Suspect]
     Dosage: UNK
     Dates: start: 20090811
  5. LYRICA [Suspect]
     Dosage: UNK
     Dates: start: 20091103
  6. LYRICA [Suspect]
     Dosage: UNK
     Dates: start: 20090219
  7. ESCITALOPRAM [Concomitant]
     Indication: ANXIETY DISORDER
     Dosage: UNK
     Route: 048
     Dates: start: 20070530
  8. TOPIRAMATE [Concomitant]
     Indication: ANXIETY DISORDER
     Dosage: UNK
     Route: 048
     Dates: start: 20080306
  9. CLONAZEPAM [Concomitant]
     Dosage: 0.5 MG, UNK
     Route: 048
     Dates: start: 20040628

REACTIONS (1)
  - DRUG ABUSE [None]
